FAERS Safety Report 8761612 (Version 2)
Quarter: 2012Q4

REPORT INFORMATION
  Report Type: Spontaneous
  Country: US (occurrence: None)
  Receive Date: 20120906
  Receipt Date: 20120906
  Transmission Date: 20130627
  Serious: Yes (Hospitalization)
  Sender: FDA-Public Use
  Company Number: 15903123

PATIENT
  Age: 49 Year
  Sex: Female

DRUGS (14)
  1. INVESTIGATIONAL PRODUCT [Suspect]
     Indication: ACUTE MYELOID LEUKAEMIA
     Route: 042
     Dates: start: 20110629
  2. ETOPOSIDE [Suspect]
     Indication: ACUTE MYELOID LEUKAEMIA
     Dates: start: 20110629, end: 20110703
  3. CYTARABINE [Suspect]
     Indication: ACUTE MYELOID LEUKAEMIA
     Dates: start: 20110629, end: 20110703
  4. MITOXANTRONE [Suspect]
     Indication: ACUTE MYELOID LEUKAEMIA
     Dates: start: 20110629, end: 20120703
  5. LEVAQUIN (LEVOFLOXACIN) [Concomitant]
  6. PREDNISONE (PREDNISONE) [Concomitant]
  7. ACYCLOVIR (ACYCLOVIR) [Concomitant]
  8. POSACONAZOLE (POSACONAZOLE) [Concomitant]
  9. DAPSONE (DAPSONE) [Concomitant]
  10. FLUCONAZOLE (FLUCONAZOLE) [Concomitant]
  11. MICAFUNGIN SODIUM [Concomitant]
  12. CARVEDILOL [Concomitant]
  13. LEVOFLOXACIN [Concomitant]
  14. VORICONAZOLE [Concomitant]

REACTIONS (4)
  - Febrile neutropenia [None]
  - Mucosal inflammation [None]
  - Pneumonia fungal [None]
  - Syncope [None]
